FAERS Safety Report 7076652-7 (Version None)
Quarter: 2010Q4

REPORT INFORMATION
  Report Type: 
  Country: None (occurrence: None)
  Receive Date: 20101101
  Receipt Date: 20101020
  Transmission Date: 20110411
  Serious: Yes (Other)
  Sender: FDA-Public Use
  Company Number: US-PFIZER INC-2010134124

PATIENT
  Sex: Female
  Weight: 71.655 kg

DRUGS (6)
  1. NEURONTIN [Suspect]
     Indication: FIBROMYALGIA
     Dosage: UNK
  2. GABAPENTIN [Suspect]
     Indication: FIBROMYALGIA
     Dosage: UNK
  3. TOPAMAX [Suspect]
     Indication: FIBROMYALGIA
     Dosage: UNK
  4. BERLIPRIL [Concomitant]
     Indication: MIGRAINE
     Dosage: UNK
  5. BERLIPRIL [Concomitant]
     Indication: HYPERTENSION
  6. PRILOSEC [Concomitant]
     Indication: GASTROOESOPHAGEAL REFLUX DISEASE
     Dosage: UNK

REACTIONS (2)
  - EMOTIONAL DISORDER [None]
  - SUICIDAL IDEATION [None]
